FAERS Safety Report 23276720 (Version 1)
Quarter: 2023Q4

REPORT INFORMATION
  Report Type: Spontaneous
  Country: US (occurrence: US)
  Receive Date: 20231208
  Receipt Date: 20231208
  Transmission Date: 20240109
  Serious: No
  Sender: FDA-Public Use
  Company Number: US-AMERICAN REGENT INC-2023000535

PATIENT
  Age: 52 Year
  Sex: Female
  Weight: 142.5 kg

DRUGS (28)
  1. VENOFER [Suspect]
     Active Substance: IRON SUCROSE
     Indication: Iron deficiency anaemia
     Dosage: 200 MILLIGRAM, IN 100 ML SODIUM CHLORIDE 0.9%
     Route: 042
     Dates: start: 20220811, end: 20220811
  2. VENOFER [Suspect]
     Active Substance: IRON SUCROSE
     Dosage: 200 MILLIGRAM, IN 100 ML SODIUM CHLORIDE 0.9%
     Route: 042
     Dates: start: 20220819, end: 20220819
  3. VENOFER [Suspect]
     Active Substance: IRON SUCROSE
     Dosage: 200 MILLIGRAM, IN 100 ML SODIUM CHLORIDE 0.9%
     Route: 042
     Dates: start: 20220826, end: 20220826
  4. SODIUM PHOSPHATE [Concomitant]
     Active Substance: SODIUM PHOSPHATE
     Indication: Hypophosphataemia
     Dosage: 18 MMOL IN DEXTROSE 5% 250 ML IVPB 70 ML/HR / 4 HOURS
     Route: 042
     Dates: start: 20220811, end: 20220811
  5. SODIUM PHOSPHATE [Concomitant]
     Active Substance: SODIUM PHOSPHATE
     Dosage: 18 MMOL IN DEXTROSE 5% 250 ML IVPB 70 ML/HR / 4 HOURS
     Route: 042
     Dates: start: 20220819, end: 20220819
  6. SODIUM PHOSPHATE [Concomitant]
     Active Substance: SODIUM PHOSPHATE
     Dosage: 18 MMOL IN DEXTROSE 5% 250 ML IVPB 70 ML/HR / 4 HOURS
     Route: 042
     Dates: start: 20220826, end: 20220826
  7. ALBUTEROL SULFATE [Concomitant]
     Active Substance: ALBUTEROL SULFATE
     Indication: Wheezing
     Dosage: INHALE 2 PUFFS INTO THE LUNGS EVERY 4 HOURS AS NEEDED FOR WHEEZING, SHORTNESS OF BREATH OR BRONCOSPA
  8. ALBUTEROL SULFATE\IPRATROPIUM BROMIDE [Concomitant]
     Active Substance: ALBUTEROL SULFATE\IPRATROPIUM BROMIDE
     Indication: Product used for unknown indication
     Dosage: USE 3 ML HOURLY X 2 HOURS, THEN EVERY 4-6 HOURS PRN
  9. ATORVASTATIN [Concomitant]
     Active Substance: ATORVASTATIN
     Indication: Product used for unknown indication
     Dosage: TAKE 1 TABLET BY MOUTH DAILY
     Route: 048
  10. brompheniramine- Pseudoeph-DM [Concomitant]
     Indication: Product used for unknown indication
     Dosage: TAKE 5 ML BY MOUTH EVERY 4 HOURS
     Route: 048
  11. BUSPIRONE [Concomitant]
     Active Substance: BUSPIRONE HYDROCHLORIDE
     Indication: Product used for unknown indication
     Dosage: TAKE 1 TABLET BY MOUTH 3 TIMES DAILY
     Route: 048
  12. BETAMETHASONE\CLOTRIMAZOLE [Concomitant]
     Active Substance: BETAMETHASONE\CLOTRIMAZOLE
     Indication: Product used for unknown indication
     Dosage: APPLY TOPICALLY 2 TIMES DAILY
     Route: 061
  13. DESVENLAFAXINE SUCCINATE [Concomitant]
     Active Substance: DESVENLAFAXINE SUCCINATE
     Indication: Product used for unknown indication
     Dosage: TAKE 1 TABLET BY MOUTH DAILY
     Route: 048
  14. FERROUS SULFATE [Concomitant]
     Active Substance: FERROUS SULFATE
     Indication: Product used for unknown indication
     Dosage: 325 MILLIGRAM (65MG IRON) TAKE 1 TABLET BY MOUTH 2 TIMES DAILY (WITH MEALS)
     Route: 048
  15. GABAPENTIN [Concomitant]
     Active Substance: GABAPENTIN
     Indication: Product used for unknown indication
     Dosage: TAKE 1 CAPSULE BY MOUTH 3 TIMES DAILY
     Route: 048
  16. GUAIFENESIN [Concomitant]
     Active Substance: GUAIFENESIN
     Indication: Product used for unknown indication
     Dosage: TAKE 1 TABLET BY MOUTH EVERY 12 HOURS
     Route: 048
  17. HYDROXYZINE [Concomitant]
     Active Substance: HYDROXYZINE HYDROCHLORIDE
     Indication: Anxiety
     Dosage: TAKE 1 TABLET BY MOUTH EVERY 8 HOURS AS NEEDED FOR ANXIETY
     Route: 048
  18. MECLIZINE [Concomitant]
     Active Substance: MECLIZINE HYDROCHLORIDE
     Indication: Product used for unknown indication
     Dosage: TAKE 1 TABLET BY MOUTH ONE HOUR BEFORE TRAVEL. MAY REPEAT EVERY 12-24 HOURS AS NEEDED
     Route: 048
  19. MELATONIN [Concomitant]
     Active Substance: MELATONIN
     Indication: Product used for unknown indication
     Dosage: 10 MILLIGRAM, TAKE BY MOUTH
     Route: 048
  20. METOPROLOL SUCCINATE [Concomitant]
     Active Substance: METOPROLOL SUCCINATE
     Indication: Product used for unknown indication
     Dosage: 50 MILLIGRAM, TAKE 1 TABLET BY MOUTH DAILY
     Route: 048
  21. METOPROLOL SUCCINATE [Concomitant]
     Active Substance: METOPROLOL SUCCINATE
     Dosage: TAKE 25 MILLIGRAM DOSE IN ADDITION TO 50 MG DOSE EVERY EVENING FOR TOTAL OF 75 MG
     Route: 048
  22. multivitamin with folic acid [Concomitant]
     Indication: Product used for unknown indication
     Dosage: 400 MICROGRAM, TAKE 1 TAB BY MOUTH DAILY
     Route: 048
  23. PLENVU [Concomitant]
     Active Substance: ASCORBIC ACID\POLYETHYLENE GLYCOL 3350\POTASSIUM CHLORIDE\SODIUM ASCORBATE\SODIUM CHLORIDE\SODIUM SU
     Indication: Product used for unknown indication
     Dosage: 140-9-5.2 GRAM PPKS, TAKE 1 BOX BY MOUTH SEE ADMIN INSTRUCTIONS
     Route: 048
  24. PREDNISONE [Concomitant]
     Active Substance: PREDNISONE
     Indication: Product used for unknown indication
     Dosage: 10 MILLIGRAM, TAKE BY MOUTH DAILY
     Route: 048
  25. QUETIAPINE FUMARATE [Concomitant]
     Active Substance: QUETIAPINE FUMARATE
     Indication: Sleep disorder
     Dosage: 100 MILLIGRAM TAKE 1 TO 2 TABLETS NIGHTLY FOR SLEEP
     Route: 048
  26. VALSARTAN [Concomitant]
     Active Substance: VALSARTAN
     Indication: Product used for unknown indication
     Dosage: 80 MILLIGRAM, TAKE 1 TABLET BY MOUTH DAILY
     Route: 048
  27. WARFARIN [Concomitant]
     Active Substance: WARFARIN
     Indication: Deep vein thrombosis
     Dosage: TAKE 12.5 MG DAILY OR AS DIRECTED BY ANTICOAG CLINIC
     Route: 048
     Dates: start: 20220801, end: 20220828
  28. WARFARIN [Concomitant]
     Active Substance: WARFARIN
     Indication: May-Thurner syndrome

REACTIONS (2)
  - Nausea [Unknown]
  - Incorrect product administration duration [Unknown]

NARRATIVE: CASE EVENT DATE: 20220811
